FAERS Safety Report 19828023 (Version 1)
Quarter: 2021Q3

REPORT INFORMATION
  Report Type: Report from Study
  Country: ZA (occurrence: ZA)
  Receive Date: 20210914
  Receipt Date: 20210914
  Transmission Date: 20211014
  Serious: Yes (Death)
  Sender: FDA-Public Use
  Company Number: ZA-ASTRAZENECA-2021A722426

PATIENT
  Sex: Female

DRUGS (6)
  1. ARIZOFY [Concomitant]
     Active Substance: ARIPIPRAZOLE
  2. FORXIGA [Concomitant]
     Active Substance: DAPAGLIFLOZIN
  3. VICTOZA [Concomitant]
     Active Substance: LIRAGLUTIDE
  4. ZARTAN [Concomitant]
     Active Substance: LOSARTAN POTASSIUM
  5. CARZIN XL [Concomitant]
     Active Substance: DOXAZOSIN MESYLATE
  6. SYMBICORD [Suspect]
     Active Substance: BUDESONIDE\FORMOTEROL
     Dosage: 160UG/INHAL
     Route: 055

REACTIONS (1)
  - Death [Fatal]
